FAERS Safety Report 7512691-7 (Version None)
Quarter: 2011Q2

REPORT INFORMATION
  Report Type: 
  Country: None (occurrence: None)
  Receive Date: 20110531
  Receipt Date: 20091031
  Transmission Date: 20111010
  Serious: Yes (Death, Hospitalization, Other)
  Sender: FDA-Public Use
  Company Number: US-BAYER-200937738NA

PATIENT
  Age: 79 Year
  Sex: Male
  Weight: 85.261 kg

DRUGS (21)
  1. AMLODIPINE [Concomitant]
     Dosage: 5 MG DAILY
     Route: 048
     Dates: start: 20041104
  2. HEPARIN [Concomitant]
     Dosage: UNK
     Dates: start: 20050511
  3. VERSED [Concomitant]
     Dosage: UNK
     Dates: start: 20050511
  4. TRASYLOL [Suspect]
     Indication: CORONARY ARTERY BYPASS
     Dosage: 200 ML, 50 CC/HOUR
     Route: 042
     Dates: start: 20050511, end: 20050511
  5. METOPROLOL TARTRATE [Concomitant]
     Dosage: 50 MG, TID
     Route: 048
     Dates: start: 20041021
  6. LASIX [Concomitant]
     Dosage: 40 MG, UNK
     Route: 048
     Dates: start: 20050115
  7. DIGOXIN [Concomitant]
  8. PROTAMINE SULFATE [Concomitant]
     Dosage: UNK
     Dates: start: 20050511
  9. COUMADIN [Concomitant]
     Dosage: 2.5 MG DAILY AND 5 MG ON WEDNESDAYS
     Route: 048
  10. NITROGLYCERIN [Concomitant]
     Dosage: 1/150 GRAIN, AS NEEDED
     Route: 060
     Dates: start: 20041021
  11. MANNITOL [Concomitant]
     Dosage: UNK
     Dates: start: 20050511
  12. TRASYLOL [Suspect]
     Dosage: 1 ML TEST DOSE
     Dates: start: 20050511, end: 20050511
  13. ROCEPHIN [Concomitant]
     Dosage: UNK
     Dates: start: 20050511
  14. BUMEX [Concomitant]
  15. VANCOMYCIN [Concomitant]
  16. LISINOPRIL [Concomitant]
     Dosage: 10 MG, TID
     Route: 048
     Dates: start: 20041130
  17. IMDUR [Concomitant]
     Dosage: 120 MG, DAILY.
     Route: 048
  18. CLONIDINE [Concomitant]
     Dosage: 0.1 MG
     Dates: start: 20050222
  19. ZITHROMAX [Concomitant]
     Dosage: 250 MG, Z-PAK
     Route: 048
     Dates: start: 20050412
  20. CARDIOPLEGIA [Concomitant]
     Dosage: UNK
     Dates: start: 20050511
  21. PRAVACHOL [Concomitant]
     Dosage: 20 MG, DAILY
     Route: 048

REACTIONS (9)
  - ANXIETY [None]
  - DEATH [None]
  - RENAL FAILURE ACUTE [None]
  - RENAL INJURY [None]
  - PAIN [None]
  - RENAL FAILURE [None]
  - EMOTIONAL DISTRESS [None]
  - UNEVALUABLE EVENT [None]
  - INJURY [None]
